FAERS Safety Report 4571210-8 (Version None)
Quarter: 2005Q1

REPORT INFORMATION
  Report Type: 
  Country: None (occurrence: None)
  Receive Date: 20050202
  Receipt Date: 20050113
  Transmission Date: 20050727
  Serious: Yes (Hospitalization)
  Sender: FDA-Public Use
  Company Number: USA050188252

PATIENT
  Age: 57 Year
  Sex: Male
  Weight: 105 kg

DRUGS (2)
  1. ZYPREXA [Suspect]
     Dosage: 20 MG/1 DAY
     Dates: start: 19980101
  2. FLUOXETINE [Suspect]
     Dates: start: 19950101

REACTIONS (8)
  - DRY MOUTH [None]
  - ERECTILE DYSFUNCTION [None]
  - INCONTINENCE [None]
  - INSOMNIA [None]
  - MALAISE [None]
  - MENTAL DISORDER [None]
  - NERVOUSNESS [None]
  - WEIGHT INCREASED [None]
